FAERS Safety Report 9337182 (Version 3)
Quarter: 2013Q3

REPORT INFORMATION
  Report Type: Spontaneous
  Country: US (occurrence: US)
  Receive Date: 20130607
  Receipt Date: 20130715
  Transmission Date: 20140515
  Serious: Yes (Disabling, Other)
  Sender: FDA-Public Use
  Company Number: US-009507513-1306USA002295

PATIENT
  Sex: Female
  Weight: 64.85 kg

DRUGS (9)
  1. DULERA [Suspect]
     Dosage: UNK
     Route: 055
     Dates: start: 20130213, end: 2013
  2. ASPIRIN [Concomitant]
     Dosage: UNK
  3. CALCIUM (UNSPECIFIED) [Concomitant]
     Dosage: UNK
  4. CRESTOR [Concomitant]
     Dosage: UNK
  5. ASCORBIC ACID [Concomitant]
  6. OMEGA-3 MARINE TRIGLYCERIDES [Concomitant]
  7. LUNESTA [Concomitant]
  8. CITALOPRAM [Concomitant]
  9. UBIDECARENONE [Concomitant]

REACTIONS (4)
  - Tooth injury [Not Recovered/Not Resolved]
  - Dental operation [Unknown]
  - Tooth loss [Not Recovered/Not Resolved]
  - Tooth extraction [Not Recovered/Not Resolved]
